FAERS Safety Report 5933221-7 (Version None)
Quarter: 2008Q4

REPORT INFORMATION
  Report Type: 
  Country: None (occurrence: None)
  Receive Date: 20081028
  Receipt Date: 20081020
  Transmission Date: 20090506
  Serious: Yes (Death, Hospitalization, Disabling, Other)
  Sender: FDA-Public Use
  Company Number: GB-PFIZER INC-2008024349

PATIENT
  Age: 45 Year
  Sex: Female
  Weight: 45.8 kg

DRUGS (23)
  1. PREDNISOLONE [Suspect]
     Indication: SYSTEMIC LUPUS ERYTHEMATOSUS
     Dates: start: 19820601
  2. CYCLOPHOSPHAMIDE [Suspect]
     Indication: SYSTEMIC LUPUS ERYTHEMATOSUS
     Dosage: FREQ:PRN
     Dates: start: 19920601
  3. AZATHIOPRINE [Suspect]
     Indication: SYSTEMIC LUPUS ERYTHEMATOSUS
     Dosage: FREQ:PRN
     Dates: start: 19820601
  4. MABTHERA [Suspect]
     Indication: SYSTEMIC LUPUS ERYTHEMATOSUS
     Route: 042
     Dates: start: 20020801, end: 20050901
  5. MABTHERA [Suspect]
     Route: 042
     Dates: start: 20051101
  6. AMLODIPINE [Concomitant]
     Indication: RAYNAUD'S PHENOMENON
     Dosage: DAILY DOSE:5MG
     Route: 048
     Dates: start: 20020615
  7. CALCICHEW-D3 [Concomitant]
     Indication: OSTEOPOROSIS
     Dosage: TEXT:2 DOSE FORM
     Route: 048
     Dates: start: 20030615
  8. CLARITIN [Concomitant]
     Indication: HYPERSENSITIVITY
     Dosage: TEXT:1 DOSE FORM
     Route: 048
     Dates: start: 20070615
  9. FOLIC ACID [Concomitant]
     Route: 048
  10. HYDROXYCHLOROQUINE [Concomitant]
     Indication: SYSTEMIC LUPUS ERYTHEMATOSUS
     Route: 048
     Dates: start: 19820615, end: 19920615
  11. HYDROXYCHLOROQUINE [Concomitant]
     Dates: start: 20020615
  12. IMMUNE GLOBULIN NOS [Concomitant]
  13. LEVOMEPROMAZINE [Concomitant]
     Route: 048
  14. NUVELLE [Concomitant]
     Indication: PREMATURE MENOPAUSE
     Dosage: TEXT:1 DOSE FORM
     Dates: start: 19930615
  15. PROBENECID [Concomitant]
  16. LEVOTHYROXINE SODIUM [Concomitant]
     Indication: HYPOTHYROIDISM
     Dates: start: 19900615
  17. METHYLPREDNISOLONE 16MG TAB [Concomitant]
     Indication: CYANOSIS
     Dates: start: 19990615, end: 20020615
  18. METHYLPREDNISOLONE 16MG TAB [Concomitant]
     Indication: PAIN
  19. LORATADINE [Concomitant]
     Indication: HYPERSENSITIVITY
     Dosage: TEXT:1 DOSE FORM
     Route: 048
     Dates: start: 20040615
  20. PREDNISOLONE [Concomitant]
     Dates: start: 20020615, end: 20030615
  21. ACYCLOVIR [Concomitant]
  22. RITUXIMAB [Concomitant]
  23. LORATADINE [Concomitant]
     Dates: start: 20040101

REACTIONS (7)
  - BONE MARROW TOXICITY [None]
  - CYSTITIS HAEMORRHAGIC [None]
  - HERPES ZOSTER [None]
  - PNEUMONIA [None]
  - PROGRESSIVE MULTIFOCAL LEUKOENCEPHALOPATHY [None]
  - RESPIRATORY FAILURE [None]
  - WEIGHT DECREASED [None]
